FAERS Safety Report 4395978-9 (Version None)
Quarter: 2004Q3

REPORT INFORMATION
  Report Type: 
  Country: None (occurrence: None)
  Receive Date: 20040707
  Receipt Date: 20040624
  Transmission Date: 20050211
  Serious: Yes (Hospitalization)
  Sender: FDA-Public Use
  Company Number: 04P-217-0263491-00

PATIENT
  Age: 66 Year
  Sex: Female
  Weight: 97 kg

DRUGS (7)
  1. MERIDIA [Suspect]
     Dosage: 10 MG, 1 IN 1 D, PER ORAL
     Route: 048
     Dates: end: 20040401
  2. RHEFLUIN [Concomitant]
  3. NAFTIDROFURYL OXALATE [Concomitant]
  4. NITROGLYCERIN [Concomitant]
  5. CONDRO [Concomitant]
  6. UDRAMIL [Concomitant]
  7. LOZAP [Concomitant]

REACTIONS (6)
  - CHOLELITHIASIS [None]
  - DRY MOUTH [None]
  - DYSGEUSIA [None]
  - MEDICATION ERROR [None]
  - ORAL DISCOMFORT [None]
  - REFLUX OESOPHAGITIS [None]
